FAERS Safety Report 9725486 (Version 2)
Quarter: 2013Q4

REPORT INFORMATION
  Report Type: Spontaneous
  Country: FR (occurrence: FR)
  Receive Date: 20131203
  Receipt Date: 20131220
  Transmission Date: 20140711
  Serious: Yes (Death, Hospitalization)
  Sender: FDA-Public Use
  Company Number: FR-SA-2013SA122463

PATIENT
  Age: 69 Year
  Sex: Male

DRUGS (5)
  1. JEVTANA [Suspect]
     Indication: PROSTATE CANCER METASTATIC
     Dosage: STRENGTH: 60 MG
     Route: 042
     Dates: start: 20130820, end: 20130820
  2. JEVTANA [Suspect]
     Indication: PROSTATE CANCER METASTATIC
     Dosage: STRENGTH: 60 MG
     Route: 042
     Dates: start: 2013
  3. JEVTANA [Suspect]
     Indication: PROSTATE CANCER METASTATIC
     Route: 042
     Dates: start: 20131022, end: 20131022
  4. ASPEGIC [Concomitant]
  5. HYZAAR [Concomitant]

REACTIONS (4)
  - Cerebral haemorrhage [Fatal]
  - Renal failure [Fatal]
  - Blood creatinine increased [Fatal]
  - Thrombocytopenia [Unknown]
